FAERS Safety Report 7463412-8 (Version None)
Quarter: 2011Q2

REPORT INFORMATION
  Report Type: 
  Country: None (occurrence: None)
  Receive Date: 20110506
  Receipt Date: 20110428
  Transmission Date: 20111010
  Serious: Yes (Death, Life-Threatening, Hospitalization)
  Sender: FDA-Public Use
  Company Number: B0660589A

PATIENT
  Sex: Male

DRUGS (10)
  1. GASMOTIN [Suspect]
     Indication: GASTRITIS
     Dosage: 10MG PER DAY
     Route: 048
     Dates: end: 20100607
  2. VESICARE [Suspect]
     Indication: HYPERTONIC BLADDER
     Dosage: 10MG PER DAY
     Route: 048
     Dates: start: 20100118, end: 20100607
  3. ASPIRIN [Suspect]
     Indication: CEREBRAL INFARCTION
     Dosage: 81MG PER DAY
     Route: 048
     Dates: end: 20100607
  4. CHINESE MEDICINE [Suspect]
     Dosage: 5G PER DAY
     Route: 048
     Dates: end: 20100607
  5. ADVAIR DISKUS 100/50 [Suspect]
     Indication: CHRONIC OBSTRUCTIVE PULMONARY DISEASE
     Dosage: 500MCG PER DAY
     Route: 055
     Dates: start: 20091207, end: 20100607
  6. GOODMIN [Suspect]
     Indication: INSOMNIA
     Dosage: .25MG PER DAY
     Route: 048
     Dates: end: 20100607
  7. SPIRIVA [Suspect]
     Indication: CHRONIC OBSTRUCTIVE PULMONARY DISEASE
     Dosage: 18MCG PER DAY
     Route: 055
     Dates: end: 20100607
  8. SENNOSIDE [Suspect]
     Route: 048
  9. SOLDEM [Concomitant]
     Dosage: 500ML PER DAY
     Route: 042
     Dates: start: 20100101, end: 20100101
  10. PANTOSIN [Suspect]
     Indication: INTESTINAL OBSTRUCTION
     Dosage: 2G PER DAY
     Route: 048
     Dates: end: 20100607

REACTIONS (18)
  - CHRONIC RESPIRATORY FAILURE [None]
  - COUGH [None]
  - PAINFUL RESPIRATION [None]
  - PNEUMONIA BACTERIAL [None]
  - BLOOD URIC ACID INCREASED [None]
  - BLOOD CREATININE INCREASED [None]
  - DECREASED APPETITE [None]
  - DEHYDRATION [None]
  - CARDIO-RESPIRATORY ARREST [None]
  - DYSPNOEA [None]
  - OXYGEN SATURATION DECREASED [None]
  - CHOKING SENSATION [None]
  - BLOOD UREA INCREASED [None]
  - FEMORAL NECK FRACTURE [None]
  - PAIN [None]
  - C-REACTIVE PROTEIN INCREASED [None]
  - WHITE BLOOD CELL COUNT INCREASED [None]
  - CHOKING [None]
